FAERS Safety Report 6240365-1 (Version None)
Quarter: 2009Q2

REPORT INFORMATION
  Report Type: 
  Country: None (occurrence: None)
  Receive Date: 20090623
  Receipt Date: 20080828
  Transmission Date: 20091009
  Serious: No
  Sender: FDA-Public Use
  Company Number: US-ASTRAZENECA-2008UW17658

PATIENT
  Age: 51 Year
  Sex: Female
  Weight: 118.2 kg

DRUGS (6)
  1. PULMICORT-100 [Suspect]
     Route: 055
     Dates: start: 20080806
  2. BROVANA [Suspect]
     Indication: ASTHMA
     Dosage: 15 UG/2ML BID
     Route: 055
     Dates: start: 20080802, end: 20080802
  3. SINGULAIR [Concomitant]
  4. SYNTHROID [Concomitant]
  5. METFORMIN HCL [Concomitant]
  6. TOPROL-XL [Concomitant]
     Route: 048

REACTIONS (2)
  - BLOOD GLUCOSE INCREASED [None]
  - HEART RATE INCREASED [None]
